FAERS Safety Report 8012687-5 (Version None)
Quarter: 2011Q4

REPORT INFORMATION
  Report Type: 
  Country: None (occurrence: None)
  Receive Date: 20111229
  Receipt Date: 20111223
  Transmission Date: 20120403
  Serious: Yes (Other)
  Sender: FDA-Public Use
  Company Number: US-BAYER-2011-122951

PATIENT
  Age: 57 Year
  Sex: Male

DRUGS (9)
  1. SORAFENIB (RAF KINASE INHIBITOR) [Suspect]
     Dosage: DAILY DOSE 600 MG
     Route: 048
  2. SORAFENIB (RAF KINASE INHIBITOR) [Suspect]
     Dosage: 200 MG, BID, 4 DAYS A WEEK
     Route: 048
  3. ATENOLOL [Concomitant]
  4. SORAFENIB (RAF KINASE INHIBITOR) [Suspect]
     Indication: METASTATIC RENAL CELL CARCINOMA
     Dosage: 200 MG, BID
     Route: 048
  5. SORAFENIB (RAF KINASE INHIBITOR) [Suspect]
     Dosage: DAILY DOSE 600 MG
     Route: 048
  6. SORAFENIB (RAF KINASE INHIBITOR) [Suspect]
     Dosage: 200 MG, QD
  7. AMLODIPINE BESYLATE AND BENAZEPRIL HYDROCHLORIDE [Concomitant]
  8. ASPIRIN [Concomitant]
     Dosage: 81 MG, QD
     Route: 048
  9. ALPRAZOLAM [Concomitant]

REACTIONS (7)
  - KERATOACANTHOMA [None]
  - ALOPECIA [None]
  - PARAESTHESIA [None]
  - PRURITUS [None]
  - SQUAMOUS CELL CARCINOMA OF SKIN [None]
  - HYPERKERATOSIS PALMARIS AND PLANTARIS [None]
  - SKIN BURNING SENSATION [None]
